FAERS Safety Report 8799111 (Version 1)
Quarter: 2012Q4

REPORT INFORMATION
  Report Type: 
  Country: US (occurrence: US)
  Receive Date: 20120920
  Receipt Date: 20120920
  Transmission Date: 20130627
  Serious: No
  Sender: FDA-Public Use
  Company Number: US-ASTRAZENECA-2011SE75405

PATIENT
  Age: 78 Year
  Sex: Female

DRUGS (5)
  1. LISINOPRIL [Suspect]
     Route: 048
  2. CRESTOR [Suspect]
     Route: 048
  3. BRILINTA [Suspect]
     Route: 048
  4. B BETA [Concomitant]
  5. ASPIRIN 81 [Concomitant]

REACTIONS (1)
  - Dyspnoea [Unknown]
